FAERS Safety Report 9473980 (Version 1)
Quarter: 2013Q3

REPORT INFORMATION
  Report Type: Spontaneous
  Country: TH (occurrence: None)
  Receive Date: 20130820
  Receipt Date: 20130820
  Transmission Date: 20140515
  Serious: Yes (Other)
  Sender: FDA-Public Use
  Company Number: 2013/161

PATIENT
  Age: 65 Year
  Sex: Female

DRUGS (3)
  1. AMLODIPINE [Suspect]
  2. ATENOL (NO PREF.NAME) [Concomitant]
  3. SIMVASTATIN [Concomitant]

REACTIONS (2)
  - Mucosal inflammation [None]
  - Stevens-Johnson syndrome [None]
